FAERS Safety Report 21704795 (Version 1)
Quarter: 2022Q4

REPORT INFORMATION
  Report Type: Spontaneous
  Country: US (occurrence: None)
  Receive Date: 20221207
  Receipt Date: 20221207
  Transmission Date: 20230112
  Serious: Yes (Death)
  Sender: FDA-Public Use
  Company Number: None

PATIENT
  Age: 61 Year
  Sex: Female
  Weight: 51.71 kg

DRUGS (4)
  1. ZARXIO [Suspect]
     Active Substance: FILGRASTIM-SNDZ
     Indication: Lung neoplasm malignant
     Dosage: OTHER STRENGTH : 480MCG/0.8ML;?OTHER QUANTITY : 480MCG;?FREQUENCY : DAILY;?
     Route: 058
  2. CARBOPLATIN [Concomitant]
     Active Substance: CARBOPLATIN
  3. ETOPOSIDE [Concomitant]
     Active Substance: ETOPOSIDE
  4. TECENTRIQ [Concomitant]
     Active Substance: ATEZOLIZUMAB

REACTIONS (3)
  - Hyperkalaemia [None]
  - Lung neoplasm malignant [None]
  - Tumour lysis syndrome [None]

NARRATIVE: CASE EVENT DATE: 20221009
